FAERS Safety Report 9229525 (Version 2)
Quarter: 2013Q2

REPORT INFORMATION
  Report Type: Spontaneous
  Country: US (occurrence: US)
  Receive Date: 20130412
  Receipt Date: 20130417
  Transmission Date: 20140414
  Serious: No
  Sender: FDA-Public Use
  Company Number: US-009507513-1304USA005428

PATIENT
  Age: 61 Year
  Sex: Female

DRUGS (1)
  1. NASONEX [Suspect]
     Indication: SINUSITIS
     Dosage: ONE PUFF IN EACH NOSTRIL BID FOR 10 DAYS
     Route: 045
     Dates: start: 20130409

REACTIONS (2)
  - Drug dose omission [Unknown]
  - Product quality issue [Unknown]
